FAERS Safety Report 4356574-2 (Version None)
Quarter: 2004Q2

REPORT INFORMATION
  Report Type: 
  Country: None (occurrence: None)
  Receive Date: 20040507
  Receipt Date: 20040416
  Transmission Date: 20050107
  Serious: Yes (Other)
  Sender: FDA-Public Use
  Company Number: US_0404102330

PATIENT
  Age: 78 Year
  Sex: Male

DRUGS (1)
  1. CECLOR [Suspect]

REACTIONS (1)
  - SHOCK [None]
